FAERS Safety Report 21580814 (Version 3)
Quarter: 2025Q2

REPORT INFORMATION
  Report Type: Spontaneous
  Country: US (occurrence: US)
  Receive Date: 20221111
  Receipt Date: 20250619
  Transmission Date: 20250716
  Serious: No
  Sender: KYOWA
  Company Number: US-KYOWAKIRIN-2022BKK017447

PATIENT

DRUGS (3)
  1. CRYSVITA [Suspect]
     Active Substance: BUROSUMAB-TWZA
     Indication: Hereditary hypophosphataemic rickets
     Dosage: 10 MG, 1X/2 WEEKS
     Route: 058
     Dates: start: 20220826
  2. CRYSVITA [Suspect]
     Active Substance: BUROSUMAB-TWZA
     Dosage: 10 MG, 1X/2 WEEKS
     Route: 058
     Dates: start: 202208
  3. CRYSVITA [Suspect]
     Active Substance: BUROSUMAB-TWZA
     Dosage: 10 MG, 1X/2 WEEKS
     Route: 058
     Dates: start: 202208

REACTIONS (3)
  - Sleep disorder [Unknown]
  - Restless legs syndrome [Unknown]
  - Product dose omission issue [Unknown]
